FAERS Safety Report 21719928 (Version 1)
Quarter: 2022Q4

REPORT INFORMATION
  Report Type: Spontaneous
  Country: PL (occurrence: PL)
  Receive Date: 20221213
  Receipt Date: 20221213
  Transmission Date: 20230112
  Serious: Yes (Other)
  Sender: FDA-Public Use
  Company Number: None

PATIENT
  Age: 74 Year
  Sex: Male
  Weight: 89 kg

DRUGS (5)
  1. DEXAMETHASONE [Suspect]
     Active Substance: DEXAMETHASONE
     Indication: Interstitial lung disease
     Dosage: 2X4MG
     Route: 042
     Dates: start: 20201229, end: 20210112
  2. NADROPARIN CALCIUM [Concomitant]
     Active Substance: NADROPARIN CALCIUM
     Indication: Interstitial lung disease
     Dosage: 0.6
     Route: 058
     Dates: start: 20201229, end: 20210109
  3. CLARITHROMYCIN [Concomitant]
     Active Substance: CLARITHROMYCIN
     Indication: Interstitial lung disease
     Dosage: 2X500
     Route: 048
     Dates: start: 20201229, end: 20210109
  4. TAROMENTIN [Concomitant]
     Indication: Interstitial lung disease
     Dosage: 3X1,2UG
     Route: 042
     Dates: start: 20201229, end: 20210109
  5. ACARD [Concomitant]
     Indication: Product used for unknown indication
     Route: 048
     Dates: start: 20201229

REACTIONS (1)
  - Oedema [Recovered/Resolved]

NARRATIVE: CASE EVENT DATE: 20210102
